FAERS Safety Report 4798284-3 (Version None)
Quarter: 2005Q4

REPORT INFORMATION
  Report Type: 
  Country: None (occurrence: None)
  Receive Date: 20051006
  Receipt Date: 20051006
  Transmission Date: 20060501
  Serious: Yes (Hospitalization)
  Sender: FDA-Public Use
  Company Number: None

PATIENT
  Age: 73 Year
  Sex: Male
  Weight: 64 kg

DRUGS (6)
  1. GLIPIZIDE [Suspect]
     Indication: HYPERGLYCAEMIA
     Dosage: 10MG PO QD
     Route: 048
  2. ROSIGLITAZONE [Suspect]
     Indication: HYPERGLYCAEMIA
     Dosage: 8 MG PO QD
     Route: 048
  3. FUROSEMIDE [Concomitant]
  4. DIGOXIN [Concomitant]
  5. ASPIRIN [Concomitant]
  6. ALBUTEROL [Concomitant]

REACTIONS (5)
  - BLOOD GLUCOSE INCREASED [None]
  - FALL [None]
  - HYPOGLYCAEMIA [None]
  - LOSS OF CONSCIOUSNESS [None]
  - SYNCOPE [None]
